FAERS Safety Report 5908616-8 (Version None)
Quarter: 2008Q4

REPORT INFORMATION
  Report Type: 
  Country: None (occurrence: None)
  Receive Date: 20081006
  Receipt Date: 20080925
  Transmission Date: 20090506
  Serious: Yes (Hospitalization, Other)
  Sender: FDA-Public Use
  Company Number: JP-JNJFOC-20080903994

PATIENT
  Age: 30 Year
  Sex: Male

DRUGS (4)
  1. PREZISTA [Suspect]
     Indication: HIV INFECTION
     Route: 048
  2. NORVIR [Concomitant]
     Indication: HIV INFECTION
  3. RETROVIR [Concomitant]
     Indication: HIV INFECTION
     Route: 048
  4. EPIVIR [Concomitant]
     Indication: HIV INFECTION
     Route: 048

REACTIONS (1)
  - ARTHRITIS [None]
